FAERS Safety Report 24219016 (Version 1)
Quarter: 2024Q3

REPORT INFORMATION
  Report Type: Spontaneous
  Country: US (occurrence: None)
  Receive Date: 20240816
  Receipt Date: 20240816
  Transmission Date: 20241017
  Serious: Yes (Hospitalization)
  Sender: Public
  Company Number: None

PATIENT
  Sex: Female

DRUGS (1)
  1. MYCOPHENOLIC ACID [Suspect]
     Active Substance: MYCOPHENOLIC ACID
     Indication: Pemphigoid
     Dosage: OTHER FREQUENCY : IN THE MORNING AND IN THE EVENING;?
     Route: 048
     Dates: start: 20221111

REACTIONS (1)
  - Bacterial infection [None]
